FAERS Safety Report 6464280-3 (Version None)
Quarter: 2009Q4

REPORT INFORMATION
  Report Type: 
  Country: None (occurrence: None)
  Receive Date: 20091201
  Receipt Date: 20091124
  Transmission Date: 20100525
  Serious: Yes (Hospitalization)
  Sender: FDA-Public Use
  Company Number: FR-WYE-G04958909

PATIENT
  Sex: Male

DRUGS (19)
  1. TAZOCILLINE [Suspect]
     Indication: RESPIRATORY TRACT INFECTION
     Route: 042
     Dates: start: 20091021, end: 20091028
  2. AMBISOME [Suspect]
     Dosage: UNKNOWN
     Dates: end: 20091030
  3. NEUPOGEN [Suspect]
     Dosage: UNKNOWN
     Dates: end: 20091030
  4. DEROXAT [Concomitant]
     Dosage: UNKNOWN
  5. AMIKLIN [Concomitant]
     Dosage: UNKNOWN
  6. SPASFON [Concomitant]
     Dosage: UNKNOWN
  7. LANSOPRAZOLE [Concomitant]
     Dosage: UNKNOWN
  8. DOLIPRANE [Concomitant]
     Dosage: UNKNOWN
  9. BACTRIM DS [Concomitant]
     Dosage: UNKNOWN
  10. DECTANCYL [Concomitant]
     Dosage: UNKNOWN
  11. FLAGYL [Concomitant]
     Dosage: UNKNOWN
  12. PURINETHOL [Concomitant]
     Dosage: UNKNOWN
  13. ZOPHREN [Concomitant]
     Dosage: UNKNOWN
  14. LASILIX [Concomitant]
     Dosage: UNKNOWN
  15. ZELITREX [Concomitant]
     Dosage: UNKNOWN
  16. LARGACTIL [Concomitant]
     Dosage: UNKNOWN
  17. ZOLOFT [Concomitant]
     Dosage: UNKNOWN
  18. XANAX [Concomitant]
     Dosage: UNKNOWN
  19. TIENAM [Suspect]
     Indication: RESPIRATORY TRACT INFECTION
     Route: 042
     Dates: start: 20091028

REACTIONS (3)
  - CHOLESTASIS [None]
  - HEPATOMEGALY [None]
  - PROTHROMBIN TIME PROLONGED [None]
